FAERS Safety Report 8954600 (Version 4)
Quarter: 2013Q1

REPORT INFORMATION
  Report Type: Spontaneous
  Country: JP (occurrence: JP)
  Receive Date: 20121210
  Receipt Date: 20130201
  Transmission Date: 20140127
  Serious: Yes (Other)
  Sender: FDA-Public Use
  Company Number: PHHY2012JP112665

PATIENT
  Sex: 0

DRUGS (7)
  1. ZOMETA [Suspect]
     Indication: PLASMA CELL MYELOMA
     Dosage: 4 MG, EVERY 4 WEEKS
     Route: 041
     Dates: start: 200803, end: 201009
  2. STEROIDS [Concomitant]
     Dosage: UNK UKN, UNK
  3. MELPHALAN [Concomitant]
     Dosage: UNK UKN, UNK
     Dates: start: 200803, end: 201012
  4. PREDNISOLONE [Concomitant]
     Dosage: UNK UKN, UNK
     Dates: start: 200803, end: 200812
  5. VINCRISTINE [Concomitant]
     Dosage: UNK UKN, UNK
     Dates: start: 201106
  6. DEXAMETHASONE [Concomitant]
     Dosage: UNK UKN, UNK
     Dates: start: 201106
  7. DOXORUBICIN [Concomitant]
     Dosage: UNK UKN, UNK
     Dates: start: 201106

REACTIONS (6)
  - Osteonecrosis of jaw [Recovering/Resolving]
  - Osteomyelitis [Unknown]
  - Periodontitis [Unknown]
  - Metastases to bone [Unknown]
  - Dental caries [Unknown]
  - Toothache [Not Recovered/Not Resolved]
